FAERS Safety Report 4642407-3 (Version None)
Quarter: 2005Q2

REPORT INFORMATION
  Report Type: 
  Country: None (occurrence: None)
  Receive Date: 20050422
  Receipt Date: 20050412
  Transmission Date: 20051028
  Serious: Yes (Hospitalization)
  Sender: FDA-Public Use
  Company Number: CH-BRISTOL-MYERS SQUIBB COMPANY-12931465

PATIENT
  Age: 6 Decade
  Sex: Male

DRUGS (1)
  1. COAPROVEL TABS 300MG/12.5MG [Suspect]
     Indication: HYPERTENSION
     Route: 048
     Dates: start: 20041228, end: 20050119

REACTIONS (1)
  - CORONARY ARTERY STENOSIS [None]
